FAERS Safety Report 6528253-4 (Version None)
Quarter: 2010Q1

REPORT INFORMATION
  Report Type: 
  Country: None (occurrence: None)
  Receive Date: 20100106
  Receipt Date: 20091224
  Transmission Date: 20100710
  Serious: No
  Sender: FDA-Public Use
  Company Number: US-B.I. PHARMACEUTICALS,INC./RIDGEFIELD-2009-BP-14890BP

PATIENT
  Sex: Female

DRUGS (2)
  1. COMBIVENT [Suspect]
     Route: 055
     Dates: start: 20040101
  2. ADVAIR DISKUS 100/50 [Concomitant]

REACTIONS (1)
  - DRUG INEFFECTIVE [None]
